FAERS Safety Report 5042496-0 (Version None)
Quarter: 2006Q2

REPORT INFORMATION
  Report Type: 
  Country: None (occurrence: None)
  Receive Date: 20060627
  Receipt Date: 20060609
  Transmission Date: 20061013
  Serious: No
  Sender: FDA-Public Use
  Company Number: 2006-143468-NL

PATIENT
  Age: 63 Year
  Sex: Female

DRUGS (5)
  1. MIRTAZAPINE [Suspect]
     Indication: ANXIETY
     Dosage: DF
  2. MIRTAZAPINE [Suspect]
     Indication: PANIC ATTACK
     Dosage: DF
  3. VENLAFAXINE HCL [Suspect]
     Indication: ANXIETY
     Dosage: DF
  4. VENLAFAXINE HCL [Suspect]
     Indication: PANIC ATTACK
     Dosage: DF
  5. CARDIAC DRUGS [Concomitant]

REACTIONS (2)
  - ISCHAEMIA [None]
  - RENAL FAILURE [None]
